FAERS Safety Report 8967618 (Version 2)
Quarter: 2013Q1

REPORT INFORMATION
  Report Type: Report from Study
  Country: TW (occurrence: TW)
  Receive Date: 20121217
  Receipt Date: 20130118
  Transmission Date: 20140127
  Serious: Yes (Hospitalization)
  Sender: FDA-Public Use
  Company Number: TW-009507513-1208TWN007696

PATIENT
  Age: 41 Year
  Sex: Female
  Weight: 73.6 kg

DRUGS (42)
  1. ASENAPINE MALEATE-SCHIZOPHRENIA [Suspect]
     Indication: SCHIZOPHRENIA
     Dosage: FORMULATION: TABLET, ROUTE: ORAL (SUBLINGUAL), DOSE IN SERIES: 2 OF 3
     Route: 060
     Dates: start: 20120504, end: 20120613
  2. ASENAPINE MALEATE-SCHIZOPHRENIA [Suspect]
     Dosage: FORMULATION: TABLET, ROUTE: ORAL (SUBLINGUAL), DOSE IN SERIES: 3 OF 3
     Route: 060
     Dates: start: 20120613, end: 20121028
  3. LORAZEPAM [Concomitant]
     Indication: INSOMNIA
     Dosage: DOSE: 1-4.75 MG, HS
     Route: 048
     Dates: start: 20111218
  4. SENNOSIDES [Concomitant]
     Indication: CONSTIPATION
     Dosage: 25 MG, HS
     Route: 048
     Dates: start: 20120316
  5. AKINETON TABLETS [Concomitant]
     Indication: EXTRAPYRAMIDAL DISORDER
     Dosage: 2 MG, QD
     Route: 048
     Dates: start: 20120406
  6. ZOLPIDEM TARTRATE [Concomitant]
     Indication: INSOMNIA
     Dosage: 10 MG, HS
     Route: 048
     Dates: start: 20120406
  7. ZOLPIDEM TARTRATE [Concomitant]
     Dosage: 10 MG, QD
     Route: 048
     Dates: start: 20121029, end: 20121211
  8. ZOLPIDEM TARTRATE [Concomitant]
     Dosage: 10 MG, ONCE
     Route: 048
     Dates: start: 20121028, end: 20121028
  9. ZOLPIDEM TARTRATE [Concomitant]
     Dosage: 10 MG, ONCE
     Route: 048
     Dates: start: 20121029, end: 20121029
  10. MIDAZOLAM [Concomitant]
     Indication: INSOMNIA
     Dosage: 7.5 MG, ONCE
     Route: 048
     Dates: start: 20120930, end: 20120930
  11. ALPRAZOLAM [Concomitant]
     Indication: INSOMNIA
     Dosage: 0.25-1 MG, HS
     Route: 048
     Dates: start: 20120816
  12. ACETAMINOPHEN [Concomitant]
     Indication: HEADACHE
     Dosage: 500 MG, ONCE
     Route: 048
     Dates: start: 20120928, end: 20120928
  13. ACETAMINOPHEN [Concomitant]
     Dosage: 500 MG, ONCE
     Route: 048
     Dates: start: 20121008, end: 20121008
  14. ACETAMINOPHEN [Concomitant]
     Dosage: 500 MG, ONCE
     Route: 048
     Dates: start: 20121027, end: 20121027
  15. ACETAMINOPHEN [Concomitant]
     Dosage: 500 MG, ONCE
     Route: 048
     Dates: start: 20121029, end: 20121029
  16. LORATADINE (+) PSEUDOEPHEDRINE SULFATE [Concomitant]
     Indication: RHINORRHOEA
     Dosage: 2-3 TABLETS, BID
     Route: 048
     Dates: start: 20120929, end: 20121008
  17. ACECLOFENAC [Concomitant]
     Dosage: 200 MG, BID
     Route: 048
     Dates: start: 20121114, end: 20121116
  18. BACLOFEN [Concomitant]
     Dosage: 20 MG, BID
     Route: 048
     Dates: start: 20121116, end: 20121121
  19. BETAXOLOL HYDROCHLORIDE [Concomitant]
     Dosage: 20 MG, BID
     Route: 048
     Dates: start: 20121106, end: 20121211
  20. BISACODYL [Concomitant]
     Dosage: 10 MG, HS
     Route: 048
     Dates: start: 20121026, end: 20121211
  21. CLONAZEPAM [Concomitant]
     Dosage: 4-4.5 MG,QD
     Route: 048
     Dates: start: 20121026, end: 20121211
  22. HALOPERIDOL [Concomitant]
     Dosage: 6 MG, TID
     Route: 048
     Dates: start: 20121026, end: 20121030
  23. HALOPERIDOL [Concomitant]
     Dosage: 2-10 MG, BID
     Route: 048
     Dates: start: 20121030, end: 20121116
  24. HALOPERIDOL [Concomitant]
     Dosage: 2 MG, QD
     Route: 048
     Dates: start: 20121116, end: 20121119
  25. HALOPERIDOL [Concomitant]
     Dosage: 2 MG, ONCE
     Route: 048
     Dates: start: 20121030, end: 20121030
  26. PROPRANOLOL HYDROCHLORIDE [Concomitant]
     Dosage: 20 MG, BID
     Route: 048
     Dates: start: 20121102, end: 20121106
  27. QUETIAPINE FUMARATE [Concomitant]
     Dosage: 200-300 MG, QD
     Route: 048
     Dates: start: 20121026, end: 20121119
  28. QUETIAPINE FUMARATE [Concomitant]
     Dosage: 350 MG, TID
     Route: 048
     Dates: start: 20121119, end: 20121121
  29. QUETIAPINE FUMARATE [Concomitant]
     Dosage: 375 MG, QID
     Route: 048
     Dates: start: 20121121, end: 20121128
  30. QUETIAPINE FUMARATE [Concomitant]
     Dosage: 400 MG, BID
     Route: 048
     Dates: start: 20121128, end: 20121211
  31. SILYMARIN [Concomitant]
     Dosage: 300 MG, BID
     Route: 048
     Dates: start: 20121025, end: 20121126
  32. TRAZODONE HYDROCHLORIDE [Concomitant]
     Dosage: 25-50 MG, QD
     Route: 048
     Dates: start: 20121106, end: 20121211
  33. ZOPICLONE [Concomitant]
     Dosage: 7.5 MG, ONCE
     Route: 048
     Dates: start: 20121102, end: 20121102
  34. ZOPICLONE [Concomitant]
     Dosage: 7.5 MG, ONCE
     Route: 048
     Dates: start: 20121103, end: 20121103
  35. ZOPICLONE [Concomitant]
     Dosage: 7.5 MG, ONCE
     Route: 048
     Dates: start: 20121126, end: 20121126
  36. ZOPICLONE [Concomitant]
     Dosage: 7.5 MG, HS
     Route: 048
     Dates: start: 20121127, end: 20121128
  37. ZOPICLONE [Concomitant]
     Dosage: 7.5 MG, HS
     Route: 048
     Dates: start: 20121130, end: 20121203
  38. POLYTAR LIQUID [Concomitant]
     Dosage: 1 BOT, ONCE
     Route: 061
     Dates: start: 20121112, end: 20121112
  39. POLYTAR LIQUID [Concomitant]
     Dosage: 1 BOT, ONCE
     Route: 061
     Dates: start: 20121126, end: 20121126
  40. POLYTAR LIQUID [Concomitant]
     Dosage: UNK
  41. DICLOFENAC [Concomitant]
     Dosage: 40 MG, ONCE
     Route: 061
     Dates: start: 20121112, end: 20121112
  42. TRIAMCINOLONE [Concomitant]
     Dosage: 5 G, ONCE
     Route: 061
     Dates: start: 20121122, end: 20121122

REACTIONS (2)
  - Panic attack [Recovered/Resolved]
  - Restlessness [Recovered/Resolved]
